FAERS Safety Report 14110320 (Version 1)
Quarter: 2017Q4

REPORT INFORMATION
  Report Type: Spontaneous
  Country: US (occurrence: None)
  Receive Date: 20171019
  Receipt Date: 20171019
  Transmission Date: 20180321
  Serious: Yes (Death, Hospitalization, Other)
  Sender: FDA-Public Use
  Company Number: None

PATIENT
  Age: 66 Year
  Sex: Male
  Weight: 136 kg

DRUGS (2)
  1. ENOXAPARIN [Suspect]
     Active Substance: ENOXAPARIN
     Indication: THROMBOSIS PROPHYLAXIS
     Route: 058
     Dates: start: 20170106, end: 20170110
  2. HEPARIN [Suspect]
     Active Substance: HEPARIN SODIUM
     Indication: THROMBOSIS PROPHYLAXIS
     Dosage: DOSE - 5000 UNITS
     Route: 058
     Dates: start: 20161220, end: 20170104

REACTIONS (4)
  - Heparin-induced thrombocytopenia [None]
  - Duodenal ulcer perforation [None]
  - Haemorrhage [None]
  - Renal failure [None]

NARRATIVE: CASE EVENT DATE: 20170203
